FAERS Safety Report 8263103-X (Version None)
Quarter: 2012Q1

REPORT INFORMATION
  Report Type: 
  Country: None (occurrence: None)
  Receive Date: 20120327
  Receipt Date: 20110415
  Transmission Date: 20120608
  Serious: Yes (Other)
  Sender: FDA-Public Use
  Company Number: PHHY2011US33450

PATIENT
  Age: 64 Year
  Sex: Male

DRUGS (1)
  1. GLEEVEC [Suspect]
     Indication: CHRONIC MYELOID LEUKAEMIA
     Dosage: 400 MG, DAILY, ORAL
     Route: 048
     Dates: start: 20110207, end: 20110316

REACTIONS (5)
  - DIARRHOEA [None]
  - DECREASED APPETITE [None]
  - MUSCLE SPASMS [None]
  - BLOOD CREATININE INCREASED [None]
  - SLEEP DISORDER [None]
